FAERS Safety Report 14599942 (Version 1)
Quarter: 2018Q1

REPORT INFORMATION
  Report Type: Spontaneous
  Country: US (occurrence: US)
  Receive Date: 20180305
  Receipt Date: 20180305
  Transmission Date: 20180509
  Serious: No
  Sender: FDA-Public Use
  Company Number: US-ELITE LABORATORIES INC.-2017ELT00004

PATIENT
  Age: 41 Year
  Sex: Female
  Weight: 77.98 kg

DRUGS (1)
  1. PHENTERMINE HYDROCHLORIDE. [Suspect]
     Active Substance: PHENTERMINE HYDROCHLORIDE
     Indication: WEIGHT CONTROL
     Dosage: UNK, 1X/DAY IN THE MORNING
     Route: 048
     Dates: start: 201701, end: 201703

REACTIONS (12)
  - Pyrexia [Recovered/Resolved]
  - Insomnia [Recovered/Resolved]
  - Thirst [Recovering/Resolving]
  - Polydipsia [Recovering/Resolving]
  - Libido increased [Recovering/Resolving]
  - Lip haemorrhage [Recovering/Resolving]
  - Abdominal pain upper [Recovering/Resolving]
  - Headache [Recovered/Resolved]
  - Pain [Recovering/Resolving]
  - Chapped lips [Recovering/Resolving]
  - Diarrhoea [Recovering/Resolving]
  - Dehydration [Recovering/Resolving]

NARRATIVE: CASE EVENT DATE: 201701
